FAERS Safety Report 5102247-8 (Version None)
Quarter: 2006Q3

REPORT INFORMATION
  Report Type: 
  Country: None (occurrence: None)
  Receive Date: 20060912
  Receipt Date: 20060829
  Transmission Date: 20061208
  Serious: Yes (Other)
  Sender: FDA-Public Use
  Company Number: US-AMGEN-STX191793

PATIENT
  Age: 59 Year
  Sex: Male

DRUGS (3)
  1. ENBREL [Suspect]
     Indication: DRUG USE FOR UNKNOWN INDICATION
     Dates: start: 20060401, end: 20060801
  2. PREDNISONE TAB [Concomitant]
     Dates: end: 20060101
  3. METHOTREXATE [Concomitant]
     Dates: start: 20050101, end: 20060401

REACTIONS (3)
  - BLOOD CREATINE PHOSPHOKINASE INCREASED [None]
  - MUSCLE ATROPHY [None]
  - MUSCLE DISORDER [None]
